FAERS Safety Report 4569027-3 (Version None)
Quarter: 2005Q1

REPORT INFORMATION
  Report Type: 
  Country: None (occurrence: None)
  Receive Date: 20050125
  Receipt Date: 20050111
  Transmission Date: 20050727
  Serious: Yes (Hospitalization)
  Sender: FDA-Public Use
  Company Number: THYM-10387

PATIENT
  Age: 47 Year
  Sex: Male

DRUGS (14)
  1. THYMOGLOBULIN [Suspect]
     Indication: DRUG USE FOR UNKNOWN INDICATION
     Dosage: 150 MG QD IV
     Route: 042
     Dates: start: 20040821, end: 20040823
  2. THYMOGLOBULIN [Suspect]
     Indication: DRUG USE FOR UNKNOWN INDICATION
     Dosage: 100 MG QD IV
     Route: 042
     Dates: start: 20040824, end: 20040825
  3. PREDNISONE [Concomitant]
  4. CELLCEPT [Concomitant]
  5. PROGRAF [Concomitant]
  6. SEPTRA DS [Concomitant]
  7. GANCICLOVIR [Concomitant]
  8. FLUCONAZOLE [Concomitant]
  9. OMEPRAZOLE [Concomitant]
  10. COLACE [Concomitant]
  11. METOPROLOL [Concomitant]
  12. PROCARDIA XL [Concomitant]
  13. CIPRO [Concomitant]
  14. VICODIN [Concomitant]

REACTIONS (4)
  - ARTHRALGIA [None]
  - MYALGIA [None]
  - URETHRITIS [None]
  - WHITE BLOOD CELL COUNT INCREASED [None]
